FAERS Safety Report 5689304-2 (Version None)
Quarter: 2008Q1

REPORT INFORMATION
  Report Type: 
  Country: None (occurrence: None)
  Receive Date: 20080331
  Receipt Date: 20080324
  Transmission Date: 20080703
  Serious: Yes (Other)
  Sender: FDA-Public Use
  Company Number: GB-BOEHRINGER INGELHEIM GMBH, GERMANY-2008-BP-04648RO

PATIENT
  Age: 45 Year
  Sex: Male

DRUGS (4)
  1. AZATHIOPRINE [Suspect]
     Indication: DERMATITIS ATOPIC
  2. PSORALEN [Suspect]
     Indication: DERMATITIS ATOPIC
  3. LOCAL EMOLLIENTS [Concomitant]
     Indication: DERMATITIS ATOPIC
     Route: 061
  4. TOPICAL STEROIDS [Concomitant]
     Indication: DERMATITIS ATOPIC
     Route: 061

REACTIONS (3)
  - DRUG INEFFECTIVE FOR UNAPPROVED INDICATION [None]
  - LIP NEOPLASM MALIGNANT STAGE UNSPECIFIED [None]
  - METASTATIC NEOPLASM [None]
